FAERS Safety Report 19700273 (Version 1)
Quarter: 2021Q3

REPORT INFORMATION
  Report Type: Spontaneous
  Country: JP (occurrence: JP)
  Receive Date: 20210813
  Receipt Date: 20210813
  Transmission Date: 20211014
  Serious: Yes (Other)
  Sender: FDA-Public Use
  Company Number: JP-PFIZER INC-202101023926

PATIENT
  Age: 5 Decade
  Sex: Female

DRUGS (2)
  1. RHEUMATREX [Suspect]
     Active Substance: METHOTREXATE SODIUM
     Dosage: 12 MG, WEEKLY
     Route: 048
  2. REMICADE [Concomitant]
     Active Substance: INFLIXIMAB
     Route: 041

REACTIONS (2)
  - Interleukin-2 receptor increased [Unknown]
  - Lymphadenopathy [Recovered/Resolved]
